FAERS Safety Report 5778442-1 (Version None)
Quarter: 2008Q2

REPORT INFORMATION
  Report Type: 
  Country: None (occurrence: None)
  Receive Date: 20080618
  Receipt Date: 20080618
  Transmission Date: 20081010
  Serious: Yes (Life-Threatening, Hospitalization)
  Sender: FDA-Public Use
  Company Number: None

PATIENT
  Age: 64 Year
  Sex: Male

DRUGS (2)
  1. CLOPIDOGREL [Suspect]
     Indication: CEREBROVASCULAR ACCIDENT
     Dosage: 75 MG EVERY DAY PO
     Route: 048
     Dates: start: 20080404, end: 20080417
  2. ENOXAPARIN SODIUM [Suspect]
     Indication: THROMBOSIS PROPHYLAXIS
     Dosage: 40 MG EVERY DAY SQ
     Route: 058
     Dates: start: 20080408, end: 20080419

REACTIONS (6)
  - ANAEMIA [None]
  - HAEMORRHAGE [None]
  - HYPOTENSION [None]
  - MELAENA [None]
  - TACHYCARDIA [None]
  - TACHYPNOEA [None]
